FAERS Safety Report 15657176 (Version 3)
Quarter: 2018Q4

REPORT INFORMATION
  Report Type: Report from Study
  Country: US (occurrence: US)
  Receive Date: 20181126
  Receipt Date: 20181224
  Transmission Date: 20190205
  Serious: Yes (Other)
  Sender: FDA-Public Use
  Company Number: PHEH2018US049068

PATIENT
  Sex: Male

DRUGS (3)
  1. ENTRESTO [Suspect]
     Active Substance: SACUBITRIL\VALSARTAN
     Indication: PRODUCT USED FOR UNKNOWN INDICATION
     Dosage: (97 MG OF SACUBITRIL, 103 MG OF VALSARTAN)
     Route: 048
  2. ENTRESTO [Suspect]
     Active Substance: SACUBITRIL\VALSARTAN
     Dosage: (97 MG OF SACUBITRIL, 103 MG OF VALSARTAN)UNK
     Route: 048
  3. ENTRESTO [Suspect]
     Active Substance: SACUBITRIL\VALSARTAN
     Dosage: 49 MG OF SACUBITRIL, 51 MG OF VALSARTAN
     Route: 048

REACTIONS (7)
  - Fall [Unknown]
  - Fatigue [Unknown]
  - Prostate cancer [Unknown]
  - Hypotension [Unknown]
  - Dizziness [Unknown]
  - Cardiac disorder [Unknown]
  - Nausea [Unknown]
